FAERS Safety Report 4808720-1 (Version None)
Quarter: 2005Q4

REPORT INFORMATION
  Report Type: 
  Country: None (occurrence: None)
  Receive Date: 20051021
  Receipt Date: 20041125
  Transmission Date: 20060501
  Serious: Yes (Other)
  Sender: FDA-Public Use
  Company Number: DE_041114789

PATIENT
  Age: 37 Year
  Sex: Female

DRUGS (2)
  1. ZYPREXA [Suspect]
     Indication: DEPRESSION
     Dosage: 10 MG DAY
     Route: 048
  2. STANGYL                      (TRIMIPRAMINE MALEATE) [Concomitant]

REACTIONS (1)
  - EOSINOPHILIA [None]
